FAERS Safety Report 4860836-X (Version None)
Quarter: 2005Q4

REPORT INFORMATION
  Report Type: 
  Country: None (occurrence: None)
  Receive Date: 20051220
  Receipt Date: 20051207
  Transmission Date: 20060501
  Serious: Yes (Death, Hospitalization)
  Sender: FDA-Public Use
  Company Number: HQWYE926909DEC05

PATIENT
  Age: 73 Year
  Sex: Male

DRUGS (4)
  1. ENBREL [Suspect]
     Indication: RHEUMATOID ARTHRITIS
     Dosage: UNKNOWN
  2. PREDNISOLONE [Concomitant]
  3. SULFASALAZINE [Concomitant]
  4. HYDROXYCHLOROQUINE SULFATE [Concomitant]

REACTIONS (6)
  - ALVEOLITIS [None]
  - GENERAL PHYSICAL HEALTH DETERIORATION [None]
  - INTERSTITIAL LUNG DISEASE [None]
  - MULTI-ORGAN FAILURE [None]
  - THERAPY NON-RESPONDER [None]
  - UPPER RESPIRATORY TRACT INFECTION [None]
